FAERS Safety Report 24374212 (Version 3)
Quarter: 2024Q4

REPORT INFORMATION
  Report Type: Spontaneous
  Country: DE (occurrence: DE)
  Receive Date: 20240927
  Receipt Date: 20241030
  Transmission Date: 20250114
  Serious: Yes (Hospitalization)
  Sender: SANDOZ
  Company Number: DE-BFARM-24006324

PATIENT
  Age: 71 Year
  Sex: Female
  Weight: 98 kg

DRUGS (22)
  1. AMITRIPTYLINE [Suspect]
     Active Substance: AMITRIPTYLINE
     Indication: Pain
     Dosage: UNK
     Route: 065
     Dates: end: 202405
  2. ATORVASTATIN [Suspect]
     Active Substance: ATORVASTATIN
     Indication: Blood cholesterol increased
     Dosage: 1 DF,1-0-0-0UNK
     Route: 065
     Dates: end: 202405
  3. BISOPROLOL [Suspect]
     Active Substance: BISOPROLOL\BISOPROLOL FUMARATE
     Indication: Hypertension
     Dosage: 1 DF, QD(HEALTHCARE 5 MG FILMTABLETTEN)
     Route: 065
     Dates: end: 202405
  4. FOSTER [Suspect]
     Active Substance: BECLOMETHASONE\FORMOTEROL
     Indication: Asthma
     Dosage: 1-0-1-0UNK,FOSTER 200/6 ?G
     Route: 065
     Dates: end: 202405
  5. IBU [Suspect]
     Active Substance: IBUPROFEN
     Indication: Pain
     Dosage: UNK(600)
     Route: 065
     Dates: end: 202405
  6. LEVOTHYROXINE SODIUM [Suspect]
     Active Substance: LEVOTHYROXINE SODIUM
     Indication: Thyroid disorder
     Dosage: 1-0-0-0UNK
     Route: 065
  7. LOSARTAN POTASSIUM [Suspect]
     Active Substance: LOSARTAN POTASSIUM
     Indication: Hypertension
     Dosage: 1-0-0-0UNK
     Route: 065
     Dates: end: 202405
  8. LOSARTAN POTASSIUM [Suspect]
     Active Substance: LOSARTAN POTASSIUM
     Dosage: UNK
     Route: 065
     Dates: end: 202405
  9. LOSARTAN POTASSIUM [Suspect]
     Active Substance: LOSARTAN POTASSIUM
     Indication: Hypertension
     Dosage: 1-0-0-0UNK
     Route: 065
  10. POLYETHYLENE GLYCOL 3350\POTASSIUM CHLORIDE\SODIUM BICARBONATE\SODIUM [Suspect]
     Active Substance: POLYETHYLENE GLYCOL 3350\POTASSIUM CHLORIDE\SODIUM BICARBONATE\SODIUM CHLORIDE
     Indication: Constipation
     Dosage: UNK
     Route: 065
     Dates: end: 202405
  11. PREGABALIN [Suspect]
     Active Substance: PREGABALIN
     Indication: Pain
     Dosage: 1-0-1-0UNK
     Route: 065
     Dates: end: 202405
  12. PREGABALIN [Suspect]
     Active Substance: PREGABALIN
     Indication: Pain
     Dosage: 1-0-1-0UNK (NEURAXPHARM 50 MG HARD CAPSULES)
     Route: 065
     Dates: end: 202405
  13. PREGABALIN [Suspect]
     Active Substance: PREGABALIN
     Indication: Sleep disorder
  14. PREGABALIN [Suspect]
     Active Substance: PREGABALIN
     Indication: Sleep disorder
  15. PANTOPRAZOLE SODIUM [Suspect]
     Active Substance: PANTOPRAZOLE SODIUM
     Indication: Abdominal discomfort
     Dosage: 1-0-0-0UNK
     Route: 065
     Dates: start: 202405, end: 202405
  16. ALBUTEROL SULFATE [Suspect]
     Active Substance: ALBUTEROL SULFATE
     Indication: Asthma
     Dosage: BEI BEDARFUNK, DOSIERAEROSOL
     Route: 065
     Dates: end: 202405
  17. TROSPIUM CHLORIDE [Suspect]
     Active Substance: TROSPIUM CHLORIDE
     Indication: Micturition urgency
     Dosage: UNK
     Route: 065
     Dates: start: 202405
  18. TROSPIUM CHLORIDE [Suspect]
     Active Substance: TROSPIUM CHLORIDE
     Indication: Micturition urgency
     Dosage: 0.67-0-0.33-0UNK
     Route: 065
     Dates: end: 202405
  19. SPIRIVA RESPIMAT [Suspect]
     Active Substance: TIOTROPIUM BROMIDE
     Indication: Asthma
     Dosage: 2-0-0-0UNK,2,5 MIKROGRAMM L?SUNG ZUR INHALATION
     Route: 065
     Dates: end: 202405
  20. TRIMIPRAMINE [Suspect]
     Active Substance: TRIMIPRAMINE
     Indication: Sleep disorder
     Dosage: UNK
     Route: 065
     Dates: end: 202405
  21. TORSEMIDE [Suspect]
     Active Substance: TORSEMIDE
     Indication: Diuretic therapy
     Dosage: 1-0-0-0UNK
     Route: 065
     Dates: end: 202405
  22. TORSEMIDE [Suspect]
     Active Substance: TORSEMIDE
     Indication: Asthma
     Dosage: 1 DFUNK
     Route: 065
     Dates: end: 202405

REACTIONS (7)
  - Genital infection viral [Unknown]
  - Genital herpes [Unknown]
  - Herpes zoster [Unknown]
  - Oral herpes [Unknown]
  - Blood pressure increased [Unknown]
  - Pruritus [Not Recovered/Not Resolved]
  - Pruritus genital [Not Recovered/Not Resolved]
